FAERS Safety Report 8574813-9 (Version None)
Quarter: 2012Q3

REPORT INFORMATION
  Report Type: 
  Country: None (occurrence: None)
  Receive Date: 20120807
  Receipt Date: 20110429
  Transmission Date: 20120928
  Serious: Yes (Death)
  Sender: FDA-Public Use
  Company Number: DE-CELGENEUS-062-21880-12060412

PATIENT
  Age: 78 Year
  Sex: Male
  Weight: 75 kg

DRUGS (6)
  1. DEXAMETHASONE [Suspect]
     Indication: MULTIPLE MYELOMA
     Route: 065
     Dates: start: 20090129
  2. REVLIMID [Suspect]
     Indication: MULTIPLE MYELOMA
     Route: 048
     Dates: start: 20090129
  3. DEXAMETHASONE [Suspect]
     Route: 065
     Dates: start: 20090910, end: 20091001
  4. HEPARIN [Concomitant]
     Indication: ANTICOAGULANT THERAPY
     Route: 065
  5. BISPHOSPHONATES [Concomitant]
     Route: 065
  6. REVLIMID [Suspect]
     Route: 048
     Dates: start: 20090910, end: 20091001

REACTIONS (7)
  - NEUROPATHY PERIPHERAL [None]
  - LEUKOPENIA [None]
  - CONSTIPATION [None]
  - MULTIPLE MYELOMA [None]
  - THROMBOCYTOPENIA [None]
  - ANAEMIA [None]
  - HYPOTENSION [None]
